FAERS Safety Report 10273332 (Version 1)
Quarter: 2014Q3

REPORT INFORMATION
  Report Type: Spontaneous
  Country: KR (occurrence: KR)
  Receive Date: 20140702
  Receipt Date: 20140702
  Transmission Date: 20150326
  Serious: Yes (Other)
  Sender: FDA-Public Use
  Company Number: KR-009507513-1406KOR013020

PATIENT
  Sex: Female

DRUGS (1)
  1. IMPLANON [Suspect]
     Active Substance: ETONOGESTREL
     Dosage: UNK
     Route: 059
     Dates: start: 201212

REACTIONS (5)
  - Pain in extremity [Unknown]
  - Depression [Unknown]
  - Medical device complication [Unknown]
  - Suicidal ideation [Unknown]
  - Feelings of worthlessness [Unknown]
